FAERS Safety Report 10080807 (Version 1)
Quarter: 2014Q2

REPORT INFORMATION
  Report Type: Spontaneous
  Country: FR (occurrence: FR)
  Receive Date: 20140416
  Receipt Date: 20140416
  Transmission Date: 20141212
  Serious: Yes (Hospitalization)
  Sender: FDA-Public Use
  Company Number: FR-JNJFOC-20140408508

PATIENT
  Age: 54 Year
  Sex: Female

DRUGS (2)
  1. REMICADE [Suspect]
     Indication: POLYCHONDRITIS
     Route: 042
     Dates: start: 201304
  2. METOJECT [Suspect]
     Indication: POLYCHONDRITIS
     Route: 065
     Dates: start: 201109

REACTIONS (3)
  - Lung disorder [Recovered/Resolved with Sequelae]
  - Interstitial lung disease [Unknown]
  - Off label use [Unknown]
